FAERS Safety Report 12118471 (Version 1)
Quarter: 2016Q1

REPORT INFORMATION
  Report Type: Spontaneous
  Country: US (occurrence: None)
  Receive Date: 20160224
  Receipt Date: 20160224
  Transmission Date: 20160526
  Serious: Yes (Life-Threatening)
  Sender: FDA-Public Use
  Company Number: None

PATIENT
  Age: 62 Year
  Sex: Female

DRUGS (3)
  1. CONTRAVE [Suspect]
     Active Substance: BUPROPION HYDROCHLORIDE\NALTREXONE HYDROCHLORIDE
     Indication: FIBROMYALGIA
     Dosage: CONTRAVE ER 8-90 M 8MG-90 2 TABS (2XDAILY ONLY TOOK 1 DAILY) 2XDAY, MOUTH
     Dates: start: 20151211, end: 20151211
  2. CONTRAVE [Suspect]
     Active Substance: BUPROPION HYDROCHLORIDE\NALTREXONE HYDROCHLORIDE
     Indication: PAIN
     Dosage: CONTRAVE ER 8-90 M 8MG-90 2 TABS (2XDAILY ONLY TOOK 1 DAILY) 2XDAY, MOUTH
     Dates: start: 20151211, end: 20151211
  3. CONTRAVE [Suspect]
     Active Substance: BUPROPION HYDROCHLORIDE\NALTREXONE HYDROCHLORIDE
     Indication: WEIGHT DECREASED
     Dosage: CONTRAVE ER 8-90 M 8MG-90 2 TABS (2XDAILY ONLY TOOK 1 DAILY) 2XDAY, MOUTH
     Dates: start: 20151211, end: 20151211

REACTIONS (9)
  - Chest discomfort [None]
  - Movement disorder [None]
  - Feeling abnormal [None]
  - Speech disorder [None]
  - Transient ischaemic attack [None]
  - Blood pressure increased [None]
  - Seizure [None]
  - Oxygen saturation decreased [None]
  - Fear [None]

NARRATIVE: CASE EVENT DATE: 20151211
